FAERS Safety Report 10952681 (Version 22)
Quarter: 2018Q3

REPORT INFORMATION
  Report Type: Spontaneous
  Country: CA (occurrence: CA)
  Receive Date: 20150325
  Receipt Date: 20180703
  Transmission Date: 20181010
  Serious: Yes (Other)
  Sender: FDA-Public Use
  Company Number: CA-ROCHE-1555539

PATIENT
  Age: 63 Year
  Sex: Female

DRUGS (17)
  1. XOLAIR [Suspect]
     Active Substance: OMALIZUMAB
     Route: 058
     Dates: start: 20170403
  2. XOLAIR [Suspect]
     Active Substance: OMALIZUMAB
     Route: 058
     Dates: start: 20170626
  3. SINGULAIR [Concomitant]
     Active Substance: MONTELUKAST SODIUM
     Indication: PRODUCT USED FOR UNKNOWN INDICATION
     Route: 065
  4. ALLERDRYL (CANADA) [Concomitant]
     Indication: DYSPNOEA
     Route: 065
  5. SYMBICORT [Concomitant]
     Active Substance: BUDESONIDE\FORMOTEROL FUMARATE DIHYDRATE
     Indication: PRODUCT USED FOR UNKNOWN INDICATION
     Dosage: BREAKTHROUGH MORE OFTEN, UP TO 1TO 2 TIMES A DAY
     Route: 065
  6. XOLAIR [Suspect]
     Active Substance: OMALIZUMAB
     Route: 058
     Dates: start: 20170306
  7. XOLAIR [Suspect]
     Active Substance: OMALIZUMAB
     Route: 058
     Dates: start: 20170821
  8. XOLAIR [Suspect]
     Active Substance: OMALIZUMAB
     Indication: ASTHMA
     Route: 058
     Dates: start: 20121023
  9. XOLAIR [Suspect]
     Active Substance: OMALIZUMAB
     Route: 058
     Dates: start: 20170109
  10. XOLAIR [Suspect]
     Active Substance: OMALIZUMAB
     Route: 058
     Dates: start: 20170529
  11. XOLAIR [Suspect]
     Active Substance: OMALIZUMAB
     Route: 058
     Dates: start: 20180205
  12. SYMBICORT [Concomitant]
     Active Substance: BUDESONIDE\FORMOTEROL FUMARATE DIHYDRATE
     Route: 065
  13. SYMBICORT [Concomitant]
     Active Substance: BUDESONIDE\FORMOTEROL FUMARATE DIHYDRATE
     Route: 065
  14. XOLAIR [Suspect]
     Active Substance: OMALIZUMAB
     Route: 058
     Dates: start: 20160427
  15. XOLAIR [Suspect]
     Active Substance: OMALIZUMAB
     Route: 058
     Dates: start: 20170206
  16. XOLAIR [Suspect]
     Active Substance: OMALIZUMAB
     Route: 058
     Dates: start: 20170918
  17. XOLAIR [Suspect]
     Active Substance: OMALIZUMAB
     Route: 058
     Dates: start: 20170501

REACTIONS (21)
  - Blood pressure systolic increased [Not Recovered/Not Resolved]
  - Thermal burn [Unknown]
  - Paraesthesia [Unknown]
  - Skin infection [Unknown]
  - Asthma [Unknown]
  - Hypoaesthesia [Unknown]
  - Musculoskeletal discomfort [Unknown]
  - Arthralgia [Unknown]
  - Middle insomnia [Unknown]
  - Arthritis infective [Unknown]
  - Upper respiratory tract infection [Unknown]
  - Bronchitis [Unknown]
  - Viral pharyngitis [Unknown]
  - Nasopharyngitis [Unknown]
  - Chest pain [Unknown]
  - Postoperative wound complication [Unknown]
  - Gait inability [Unknown]
  - Gastrooesophageal reflux disease [Unknown]
  - Obstructive airways disorder [Not Recovered/Not Resolved]
  - Cystitis [Not Recovered/Not Resolved]
  - Rotator cuff syndrome [Unknown]

NARRATIVE: CASE EVENT DATE: 20141220
